FAERS Safety Report 5900948-2 (Version None)
Quarter: 2008Q3

REPORT INFORMATION
  Report Type: 
  Country: None (occurrence: None)
  Receive Date: 20080929
  Receipt Date: 20080923
  Transmission Date: 20090109
  Serious: No
  Sender: FDA-Public Use
  Company Number: GB-BAYER-200812212BNE

PATIENT
  Age: 58 Year
  Sex: Female

DRUGS (3)
  1. CIPROFLOXACIN [Suspect]
     Indication: URINARY TRACT INFECTION
     Dosage: TOTAL DAILY DOSE: 500 MG
     Route: 048
     Dates: start: 20080623, end: 20080625
  2. PREMPAK [Concomitant]
     Indication: HORMONE REPLACEMENT THERAPY
     Route: 048
  3. PREMPAK [Concomitant]

REACTIONS (1)
  - CLITORAL ENGORGEMENT [None]
